FAERS Safety Report 19025179 (Version 2)
Quarter: 2021Q2

REPORT INFORMATION
  Report Type: Report from Study
  Country: LB (occurrence: LB)
  Receive Date: 20210318
  Receipt Date: 20210407
  Transmission Date: 20210717
  Serious: Yes (Other)
  Sender: FDA-Public Use
  Company Number: NVSC2021LB056731

PATIENT
  Age: 61 Year
  Sex: Female

DRUGS (5)
  1. LASIX [Concomitant]
     Active Substance: FUROSEMIDE
     Indication: PRODUCT USED FOR UNKNOWN INDICATION
     Dosage: UNK
     Route: 065
  2. PREDNISONE. [Concomitant]
     Active Substance: PREDNISONE
     Indication: PRODUCT USED FOR UNKNOWN INDICATION
     Dosage: UNK
     Route: 065
  3. FEMARA [Concomitant]
     Active Substance: LETROZOLE
     Indication: PRODUCT USED FOR UNKNOWN INDICATION
     Route: 065
  4. KISQALI [Suspect]
     Active Substance: RIBOCICLIB
     Indication: BREAST CANCER
     Dosage: 2 DF, QD
     Route: 048
     Dates: start: 20201007, end: 20210324
  5. FASLODEX [Concomitant]
     Active Substance: FULVESTRANT
     Indication: PRODUCT USED FOR UNKNOWN INDICATION
     Dosage: UNK
     Route: 065

REACTIONS (5)
  - Jaundice [Unknown]
  - Intestinal metastasis [Unknown]
  - Metastases to liver [Not Recovered/Not Resolved]
  - Hyperbilirubinaemia [Unknown]
  - Tumour marker increased [Unknown]

NARRATIVE: CASE EVENT DATE: 20210308
